FAERS Safety Report 5938530-3 (Version None)
Quarter: 2008Q4

REPORT INFORMATION
  Report Type: 
  Country: None (occurrence: None)
  Receive Date: 20081103
  Receipt Date: 20081023
  Transmission Date: 20090506
  Serious: Yes (Other)
  Sender: FDA-Public Use
  Company Number: PHHY2008GR25844

PATIENT
  Age: 59 Year
  Sex: Female
  Weight: 70 kg

DRUGS (2)
  1. ZOMETA [Suspect]
     Indication: OSTEOPOROSIS
  2. TRANXENE [Concomitant]

REACTIONS (1)
  - GASTROINTESTINAL DISORDER [None]
